FAERS Safety Report 8484705-1 (Version None)
Quarter: 2012Q3

REPORT INFORMATION
  Report Type: 
  Country: None (occurrence: None)
  Receive Date: 20120703
  Receipt Date: 20120508
  Transmission Date: 20120928
  Serious: No
  Sender: FDA-Public Use
  Company Number: US-TEVA-337214USA

PATIENT
  Sex: Female
  Weight: 59.02 kg

DRUGS (7)
  1. NUVIGIL [Suspect]
     Indication: FIBROMYALGIA
     Route: 048
     Dates: start: 20110501, end: 20120201
  2. DULOXETINE HYDROCHLORIDE [Concomitant]
     Indication: FIBROMYALGIA
     Route: 048
  3. NUVIGIL [Suspect]
     Indication: OFF LABEL USE
  4. FENTANYL CITRATE [Concomitant]
     Indication: FIBROMYALGIA
     Route: 062
  5. NUVIGIL [Suspect]
     Indication: FATIGUE
     Route: 048
     Dates: start: 20120201, end: 20120401
  6. THYROID TAB [Concomitant]
     Indication: HYPOTHYROIDISM
     Route: 048
  7. BUPROPION HCL [Concomitant]
     Indication: FIBROMYALGIA
     Route: 048

REACTIONS (2)
  - OFF LABEL USE [None]
  - DRUG EFFECT DECREASED [None]
